FAERS Safety Report 9837481 (Version 3)
Quarter: 2014Q1

REPORT INFORMATION
  Report Type: Spontaneous
  Country: US (occurrence: US)
  Receive Date: 20140123
  Receipt Date: 20140327
  Transmission Date: 20141002
  Serious: Yes (Hospitalization)
  Sender: FDA-Public Use
  Company Number: US-JNJFOC-20140109373

PATIENT
  Age: 41 Year
  Sex: Female
  Weight: 52.62 kg

DRUGS (12)
  1. REMICADE [Suspect]
     Indication: PSORIATIC ARTHROPATHY
     Dosage: 2ND INFUSION
     Route: 042
     Dates: end: 201312
  2. REMICADE [Suspect]
     Indication: PSORIATIC ARTHROPATHY
     Dosage: INFUSION AT 0 WEEKS, 2 WEEKS, 6 WEEKS AND THEN EVERY 8 WEEKS.
     Route: 042
     Dates: start: 20131205, end: 20131205
  3. PREDNISONE [Suspect]
     Indication: PRODUCT USED FOR UNKNOWN INDICATION
     Route: 048
     Dates: start: 20131212
  4. PREDNISONE [Suspect]
     Indication: PRODUCT USED FOR UNKNOWN INDICATION
     Route: 048
     Dates: start: 201312, end: 201312
  5. PREDNISONE [Suspect]
     Indication: PRODUCT USED FOR UNKNOWN INDICATION
     Route: 048
     Dates: start: 201312
  6. PREDNISONE [Suspect]
     Indication: PRODUCT USED FOR UNKNOWN INDICATION
     Route: 048
     Dates: start: 20131213
  7. PREDNISONE [Suspect]
     Indication: PRODUCT USED FOR UNKNOWN INDICATION
     Route: 048
     Dates: start: 201312
  8. PREDNISONE [Suspect]
     Indication: PRODUCT USED FOR UNKNOWN INDICATION
     Route: 048
     Dates: start: 201312
  9. NEURONTIN [Concomitant]
     Route: 048
  10. SINEMET [Concomitant]
     Route: 048
  11. ADALIMUMAB [Concomitant]
     Route: 058
  12. ZOLPIDEM [Concomitant]
     Route: 048

REACTIONS (9)
  - Skin discolouration [Recovered/Resolved]
  - Hypersensitivity [Not Recovered/Not Resolved]
  - Infusion related reaction [Not Recovered/Not Resolved]
  - Palpitations [Recovered/Resolved]
  - Rash [Recovered/Resolved]
  - Chest discomfort [Unknown]
  - Sinus headache [Recovered/Resolved]
  - Lymphadenopathy [Recovering/Resolving]
  - Nausea [Recovered/Resolved]
